FAERS Safety Report 11325399 (Version 2)
Quarter: 2015Q3

REPORT INFORMATION
  Report Type: Spontaneous
  Country: BR (occurrence: BR)
  Receive Date: 20150730
  Receipt Date: 20150921
  Transmission Date: 20151125
  Serious: Yes (Hospitalization)
  Sender: FDA-Public Use
  Company Number: BR-AMGEN-BRASP2015076600

PATIENT
  Age: 25 Year
  Sex: Female
  Weight: 65 kg

DRUGS (5)
  1. FOLIC ACID. [Concomitant]
     Active Substance: FOLIC ACID
     Dosage: UNK
     Dates: start: 2013
  2. VIMOVO [Concomitant]
     Active Substance: ESOMEPRAZOLE MAGNESIUM\NAPROXEN
     Indication: PAIN
     Dosage: STRENGTH 500 MG, IF PRESENTS PAIN
     Dates: start: 20150707, end: 20150730
  3. ENBREL [Suspect]
     Active Substance: ETANERCEPT
     Indication: ANKYLOSING SPONDYLITIS
     Dosage: 50 MG 1X/WEEK
     Route: 058
     Dates: start: 201207
  4. XARELTO [Concomitant]
     Active Substance: RIVAROXABAN
     Dosage: STRENGTH 10 MG, UNK
     Dates: start: 20150701, end: 20150730
  5. OMEPRAZOLE. [Concomitant]
     Active Substance: OMEPRAZOLE
     Dosage: STRENGTH 20 MG, UNK

REACTIONS (2)
  - Arthropathy [Unknown]
  - Chondropathy [Unknown]

NARRATIVE: CASE EVENT DATE: 20150630
